FAERS Safety Report 10385335 (Version 1)
Quarter: 2014Q3

REPORT INFORMATION
  Report Type: Spontaneous
  Country: DE (occurrence: DE)
  Receive Date: 20140814
  Receipt Date: 20140814
  Transmission Date: 20150326
  Serious: Yes (Hospitalization)
  Sender: FDA-Public Use
  Company Number: DE-TEVA-500730GER

PATIENT
  Age: 42 Year
  Sex: Male

DRUGS (2)
  1. ASPIRIN. [Suspect]
     Active Substance: ASPIRIN
     Indication: CEREBRAL ISCHAEMIA
     Dosage: 500MG
     Route: 065
  2. CLOPIDOGREL [Suspect]
     Active Substance: CLOPIDOGREL BISULFATE
     Indication: CEREBRAL ISCHAEMIA
     Dosage: 600MG
     Route: 065

REACTIONS (3)
  - Cerebral haemorrhage [Recovering/Resolving]
  - Hydrocephalus [Recovering/Resolving]
  - Intraventricular haemorrhage [Recovering/Resolving]
